FAERS Safety Report 19705226 (Version 1)
Quarter: 2021Q3

REPORT INFORMATION
  Report Type: Spontaneous
  Country: US (occurrence: US)
  Receive Date: 20210816
  Receipt Date: 20210816
  Transmission Date: 20211014
  Serious: No
  Sender: FDA-Public Use
  Company Number: None

PATIENT
  Age: 41 Year
  Sex: Female
  Weight: 68.85 kg

DRUGS (1)
  1. CEPHALEXIN. [Suspect]
     Active Substance: CEPHALEXIN
     Indication: HORDEOLUM
     Route: 048
     Dates: start: 20210715, end: 20210723

REACTIONS (4)
  - Pruritus genital [None]
  - Axillary pain [None]
  - Rash pruritic [None]
  - Anal pruritus [None]

NARRATIVE: CASE EVENT DATE: 20210718
